FAERS Safety Report 10279708 (Version 1)
Quarter: 2014Q3

REPORT INFORMATION
  Report Type: Spontaneous
  Country: US (occurrence: US)
  Receive Date: 20140707
  Receipt Date: 20140707
  Transmission Date: 20150326
  Serious: No
  Sender: FDA-Public Use
  Company Number: US-B.I. PHARMACEUTICALS,INC./RIDGEFIELD-2014-BI-29736BP

PATIENT
  Sex: Female
  Weight: 80 kg

DRUGS (3)
  1. COMBIVENT [Suspect]
     Active Substance: ALBUTEROL SULFATE\IPRATROPIUM BROMIDE
     Indication: LUNG TRANSPLANT
  2. PENTAMIDINE [Concomitant]
     Active Substance: PENTAMIDINE
     Indication: LUNG TRANSPLANT
     Route: 055
     Dates: start: 1999
  3. COMBIVENT [Suspect]
     Active Substance: ALBUTEROL SULFATE\IPRATROPIUM BROMIDE
     Indication: OBSTRUCTIVE AIRWAYS DISORDER
     Dosage: FORMULATION: INHALATION AEROSOL; DOSE PER APPLICATION: 18MCG /103MCG; DAILY DOSE: 72MCG/400MCG
     Route: 055
     Dates: start: 2000, end: 201404

REACTIONS (2)
  - Bronchospasm [Not Recovered/Not Resolved]
  - Off label use [Recovered/Resolved]

NARRATIVE: CASE EVENT DATE: 2000
